FAERS Safety Report 16256261 (Version 3)
Quarter: 2019Q2

REPORT INFORMATION
  Report Type: Spontaneous
  Country: US (occurrence: US)
  Receive Date: 20190430
  Receipt Date: 20190619
  Transmission Date: 20190711
  Serious: No
  Sender: FDA-Public Use
  Company Number: US-PFIZER INC-2019179121

PATIENT
  Age: 42 Year
  Sex: Female

DRUGS (2)
  1. METHOTREXATE SODIUM. [Suspect]
     Active Substance: METHOTREXATE SODIUM
     Dosage: UNKNOWN DOSAGE REGIMEN
  2. ENBREL [Suspect]
     Active Substance: ETANERCEPT
     Dosage: UNKNOWN DOSAGE REGIMEN

REACTIONS (1)
  - Drug ineffective [Unknown]
